FAERS Safety Report 8456526-7 (Version None)
Quarter: 2012Q2

REPORT INFORMATION
  Report Type: 
  Country: None (occurrence: None)
  Receive Date: 20120621
  Receipt Date: 20120613
  Transmission Date: 20120825
  Serious: Yes (Other)
  Sender: FDA-Public Use
  Company Number: DE-MILLENNIUM PHARMACEUTICALS, INC.-2011-05455

PATIENT

DRUGS (6)
  1. MELPHALAN HYDROCHLORIDE [Suspect]
     Indication: MULTIPLE MYELOMA
     Dosage: 200 MG/M2, CYCLIC
  2. THALIDOMIDE [Suspect]
     Indication: MULTIPLE MYELOMA
  3. VELCADE [Suspect]
     Indication: MULTIPLE MYELOMA
  4. MELPHALAN HYDROCHLORIDE [Suspect]
     Indication: MYELODYSPLASTIC SYNDROME
  5. VELCADE [Suspect]
     Indication: MYELODYSPLASTIC SYNDROME
  6. THALIDOMIDE [Suspect]
     Indication: MYELODYSPLASTIC SYNDROME

REACTIONS (2)
  - NEOPLASM MALIGNANT [None]
  - MYELODYSPLASTIC SYNDROME [None]
